FAERS Safety Report 7757118-5 (Version None)
Quarter: 2011Q3

REPORT INFORMATION
  Report Type: 
  Country: None (occurrence: None)
  Receive Date: 20110916
  Receipt Date: 20110909
  Transmission Date: 20111222
  Serious: Yes (Hospitalization)
  Sender: FDA-Public Use
  Company Number: JP-MERCK-1109USA01049

PATIENT
  Age: 60 Year
  Sex: Male

DRUGS (1)
  1. JANUVIA [Suspect]
     Route: 048
     Dates: start: 20110801

REACTIONS (1)
  - ANAEMIA [None]
